FAERS Safety Report 6345426-4 (Version None)
Quarter: 2009Q3

REPORT INFORMATION
  Report Type: 
  Country: None (occurrence: None)
  Receive Date: 20090909
  Receipt Date: 20090831
  Transmission Date: 20100115
  Serious: Yes (Hospitalization)
  Sender: FDA-Public Use
  Company Number: BR-ASTRAZENECA-2009SE10977

PATIENT
  Age: 85 Year
  Sex: Female
  Weight: 68 kg

DRUGS (10)
  1. SEROQUEL [Suspect]
     Indication: SEDATION
     Route: 048
     Dates: start: 20060101
  2. ANTAK [Concomitant]
     Indication: PROPHYLAXIS
     Route: 048
     Dates: start: 20080801
  3. ALOIS [Concomitant]
     Indication: MEMORY IMPAIRMENT
     Route: 048
     Dates: start: 20060101
  4. PRESSAT [Concomitant]
     Indication: HYPERTENSION
     Route: 048
     Dates: start: 20040101
  5. MIODON [Concomitant]
     Indication: HYPERTENSION
     Route: 048
     Dates: start: 20040101
  6. APRESOLINA [Concomitant]
     Indication: HYPERTENSION
     Route: 048
     Dates: start: 20040101
  7. RISPERIDONE [Concomitant]
     Route: 048
     Dates: start: 20090701
  8. EXELON [Concomitant]
     Indication: MEMORY IMPAIRMENT
     Dates: start: 20090301
  9. METAMUCIL [Concomitant]
     Dates: start: 20090801
  10. ALMEIDA PRADO COMPLEX [Concomitant]
     Dates: start: 20090801

REACTIONS (4)
  - AMNESIA [None]
  - CONSTIPATION [None]
  - FALL [None]
  - RESTLESSNESS [None]
